FAERS Safety Report 4978276-1 (Version None)
Quarter: 2006Q2

REPORT INFORMATION
  Report Type: 
  Country: None (occurrence: None)
  Receive Date: 20060414
  Receipt Date: 20060403
  Transmission Date: 20061013
  Serious: Yes (Other)
  Sender: FDA-Public Use
  Company Number: HQWYE644005APR06

PATIENT
  Age: 37 Year
  Sex: Male
  Weight: 102.15 kg

DRUGS (1)
  1. ADVIL [Suspect]
     Indication: ARTHRALGIA
     Dosage: 2 TABLET 3X PER 1 DAY, ORAL
     Route: 048
     Dates: start: 20060330, end: 20060331

REACTIONS (9)
  - ERYTHEMA [None]
  - FACE OEDEMA [None]
  - NASAL OEDEMA [None]
  - OEDEMA PERIPHERAL [None]
  - PRURITUS [None]
  - RASH MACULAR [None]
  - SWELLING FACE [None]
  - SWOLLEN TONGUE [None]
  - THROAT TIGHTNESS [None]
